FAERS Safety Report 5426276-X (Version None)
Quarter: 2007Q3

REPORT INFORMATION
  Report Type: 
  Country: None (occurrence: None)
  Receive Date: 20070731
  Receipt Date: 20070405
  Transmission Date: 20080115
  Serious: No
  Sender: FDA-Public Use
  Company Number: 2007PV029636

PATIENT
  Age: 73 Year
  Sex: Male
  Weight: 69.4 kg

DRUGS (7)
  1. EXENATIDE (EXENATIDE) PEN, DISPOSABLE [Suspect]
     Indication: TYPE 2 DIABETES MELLITUS
     Dosage: 5 UG, 2/D, SUBCUTANEOUS, 10 UG, 2/D; SUBCUTANEOUS, 5UG, 2/D, SUBCUTANEOUS, 5 UG, 2/D, 5 UG,2/D
     Route: 058
     Dates: start: 20060101, end: 20060619
  2. EXENATIDE (EXENATIDE) PEN, DISPOSABLE [Suspect]
     Indication: TYPE 2 DIABETES MELLITUS
     Dosage: 5 UG, 2/D, SUBCUTANEOUS, 10 UG, 2/D; SUBCUTANEOUS, 5UG, 2/D, SUBCUTANEOUS, 5 UG, 2/D, 5 UG,2/D
     Route: 058
     Dates: start: 20060620, end: 20060627
  3. EXENATIDE (EXENATIDE) PEN, DISPOSABLE [Suspect]
     Indication: TYPE 2 DIABETES MELLITUS
     Dosage: 5 UG, 2/D, SUBCUTANEOUS, 10 UG, 2/D; SUBCUTANEOUS, 5UG, 2/D, SUBCUTANEOUS, 5 UG, 2/D, 5 UG,2/D
     Route: 058
     Dates: start: 20060110, end: 20070201
  4. EXENATIDE (EXENATIDE) PEN, DISPOSABLE [Suspect]
     Indication: TYPE 2 DIABETES MELLITUS
     Dosage: 5 UG, 2/D, SUBCUTANEOUS, 10 UG, 2/D; SUBCUTANEOUS, 5UG, 2/D, SUBCUTANEOUS, 5 UG, 2/D, 5 UG,2/D
     Route: 058
     Dates: start: 20060628, end: 20070206
  5. EXENATIDE (EXENATIDE) PEN, DISPOSABLE [Suspect]
     Indication: TYPE 2 DIABETES MELLITUS
     Dosage: 5 UG, 2/D, SUBCUTANEOUS, 10 UG, 2/D; SUBCUTANEOUS, 5UG, 2/D, SUBCUTANEOUS, 5 UG, 2/D, 5 UG,2/D
     Route: 058
     Dates: start: 20070217
  6. GLUCOTROL [Concomitant]
  7. EXENATIDE (EXENATIDE) PEN, DISPOSABLE [Suspect]

REACTIONS (7)
  - CHILLS [None]
  - DIZZINESS [None]
  - GAIT DISTURBANCE [None]
  - LICE INFESTATION [None]
  - URTICARIA [None]
  - VISION BLURRED [None]
  - WEIGHT DECREASED [None]
